FAERS Safety Report 7626050-X (Version None)
Quarter: 2011Q3

REPORT INFORMATION
  Report Type: 
  Country: None (occurrence: None)
  Receive Date: 20110713
  Receipt Date: 20110707
  Transmission Date: 20111222
  Serious: Yes (Hospitalization)
  Sender: FDA-Public Use
  Company Number: ALK_01779_2011

PATIENT
  Sex: Male

DRUGS (2)
  1. VIVITROL [Suspect]
     Indication: ALCOHOLISM
     Dosage: INTRAMUSCULAR
     Route: 030
     Dates: start: 20110101, end: 20110601
  2. TRAZODONE HYDROCHLORIDE [Concomitant]

REACTIONS (4)
  - ABDOMINAL PAIN [None]
  - NAUSEA [None]
  - INJECTION SITE INFECTION [None]
  - STAPHYLOCOCCAL INFECTION [None]
